FAERS Safety Report 6099825-9 (Version None)
Quarter: 2009Q1

REPORT INFORMATION
  Report Type: 
  Country: None (occurrence: None)
  Receive Date: 20090303
  Receipt Date: 20090223
  Transmission Date: 20090719
  Serious: Yes (Other)
  Sender: FDA-Public Use
  Company Number: PHHY2009KR06771

PATIENT
  Sex: Female

DRUGS (1)
  1. STALEVO 100 [Suspect]
     Dosage: 0.5 DF/DAY
     Route: 048

REACTIONS (2)
  - GASTRIC CANCER [None]
  - WRONG TECHNIQUE IN DRUG USAGE PROCESS [None]
